FAERS Safety Report 6253540-7 (Version None)
Quarter: 2009Q3

REPORT INFORMATION
  Report Type: 
  Country: None (occurrence: None)
  Receive Date: 20090701
  Receipt Date: 20090629
  Transmission Date: 20100115
  Serious: Yes (Hospitalization)
  Sender: FDA-Public Use
  Company Number: US-GILEAD-2009-0022825

PATIENT
  Sex: Female
  Weight: 57.204 kg

DRUGS (9)
  1. LETAIRIS [Suspect]
     Indication: PULMONARY ARTERIAL HYPERTENSION
     Route: 048
  2. DILTIAZEM [Concomitant]
  3. FUROSEMIDE INTENSOL [Concomitant]
  4. ASPIRIN [Concomitant]
  5. ALBUTEROL [Concomitant]
  6. SPIRIVA [Concomitant]
  7. VITAMIN D [Concomitant]
  8. LEVOTHYROXINE SODIUM [Concomitant]
  9. FISH OIL [Concomitant]

REACTIONS (1)
  - PNEUMONIA [None]
